FAERS Safety Report 4609128-4 (Version None)
Quarter: 2005Q1

REPORT INFORMATION
  Report Type: 
  Country: None (occurrence: None)
  Receive Date: 20050311
  Receipt Date: 20050302
  Transmission Date: 20050727
  Serious: Yes (Hospitalization)
  Sender: FDA-Public Use
  Company Number: HQWYE782021JAN05

PATIENT
  Age: 76 Year
  Sex: Female
  Weight: 66.28 kg

DRUGS (2)
  1. ZOSYN [Suspect]
     Indication: PNEUMONIA BACTERIAL
     Dosage: INTRAVENOUS
     Route: 042
     Dates: start: 20050108, end: 20050110
  2. ZOSYN [Suspect]
     Indication: PNEUMONIA VIRAL
     Dosage: INTRAVENOUS
     Route: 042
     Dates: start: 20050108, end: 20050110

REACTIONS (11)
  - ANAEMIA [None]
  - CHEILITIS [None]
  - DIARRHOEA HAEMORRHAGIC [None]
  - DRUG HYPERSENSITIVITY [None]
  - HYPERSENSITIVITY [None]
  - HYPOGEUSIA [None]
  - ORAL FUNGAL INFECTION [None]
  - PLATELET COUNT DECREASED [None]
  - THROAT IRRITATION [None]
  - TONGUE ULCERATION [None]
  - VAGINAL MYCOSIS [None]
